FAERS Safety Report 9436598 (Version 1)
Quarter: 2013Q3

REPORT INFORMATION
  Report Type: Report from Study
  Country: NL (occurrence: NL)
  Receive Date: 20130802
  Receipt Date: 20130802
  Transmission Date: 20140515
  Serious: Yes (Hospitalization)
  Sender: FDA-Public Use
  Company Number: NL-ROCHE-1065112

PATIENT
  Age: 71 Year
  Sex: Female

DRUGS (5)
  1. CAPECITABINE [Suspect]
     Indication: GASTRIC CANCER
     Dosage: BID FOR 2 WEEKS, 3WKS, BID 5XWK,5WKS
     Route: 048
     Dates: start: 20120328
  2. CISPLATIN [Suspect]
     Indication: GASTRIC CANCER
     Dosage: DARE OF MOST RECENT DOSE 28/MAR/2012, ONCE A WEEK OR 5 WWEKS
     Route: 042
     Dates: start: 20120328
  3. EPIRUBICIN [Suspect]
     Indication: GASTRIC CANCER
     Route: 042
     Dates: start: 20120328
  4. PRIMPERAN (NETHERLANDS) [Concomitant]
     Route: 065
     Dates: start: 20120411
  5. DIFLUCAN [Concomitant]
     Dosage: 1DD
     Route: 065
     Dates: start: 20120411

REACTIONS (3)
  - Ileus [Recovering/Resolving]
  - Dehydration [Recovered/Resolved]
  - Mucosal inflammation [Recovered/Resolved]
